FAERS Safety Report 13416435 (Version 2)
Quarter: 2017Q4

REPORT INFORMATION
  Report Type: Spontaneous
  Country: FR (occurrence: FR)
  Receive Date: 20170407
  Receipt Date: 20171019
  Transmission Date: 20180320
  Serious: Yes (Hospitalization)
  Sender: FDA-Public Use
  Company Number: FR-PFIZER INC-2017145508

PATIENT
  Age: 64 Year
  Sex: Female

DRUGS (8)
  1. DOCETAXEL. [Suspect]
     Active Substance: DOCETAXEL
     Indication: BREAST CANCER
     Dosage: 123 MG, CYCLIC
     Route: 042
     Dates: start: 20170124, end: 20170124
  2. DOCETAXEL. [Suspect]
     Active Substance: DOCETAXEL
     Dosage: 123 MG, CYCLIC
     Route: 042
     Dates: start: 20170223, end: 20170223
  3. METHYLPREDNISOLONE SODIUM SUCCINATE. [Suspect]
     Active Substance: METHYLPREDNISOLONE SODIUM SUCCINATE
     Indication: PREMEDICATION
     Dosage: CYCLIC
     Route: 042
     Dates: start: 20170124, end: 20170124
  4. METHYLPREDNISOLONE SODIUM SUCCINATE. [Suspect]
     Active Substance: METHYLPREDNISOLONE SODIUM SUCCINATE
     Dosage: 80 MG, SINGLE
     Route: 042
     Dates: start: 20170223, end: 20170223
  5. DEXCHLORPHENIRAMINE [Suspect]
     Active Substance: DEXCHLORPHENIRAMINE
     Indication: PREMEDICATION
     Dosage: CYCLIC
     Route: 042
     Dates: start: 20170124, end: 20170124
  6. DEXCHLORPHENIRAMINE [Suspect]
     Active Substance: DEXCHLORPHENIRAMINE
     Dosage: 5 MG, SINGLE
     Route: 042
     Dates: start: 20170223, end: 20170223
  7. PREDNISOLONE. [Suspect]
     Active Substance: PREDNISOLONE
     Indication: PREMEDICATION
     Dosage: CYCLIC
     Route: 048
     Dates: start: 20170124, end: 20170124
  8. PREDNISOLONE. [Suspect]
     Active Substance: PREDNISOLONE
     Dosage: 100 MG, CYCLIC (50 MG TWICE DURING ONE CYCLE)
     Route: 048
     Dates: start: 20170224, end: 20170225

REACTIONS (3)
  - Genital herpes [Recovered/Resolved]
  - Mucosal inflammation [Recovered/Resolved]
  - Enterocolitis [Recovered/Resolved]

NARRATIVE: CASE EVENT DATE: 2017
